FAERS Safety Report 23362675 (Version 1)
Quarter: 2024Q1

REPORT INFORMATION
  Report Type: Spontaneous
  Country: US (occurrence: US)
  Receive Date: 20240103
  Receipt Date: 20240103
  Transmission Date: 20240410
  Serious: No
  Sender: FDA-Public Use
  Company Number: US-MYLANLABS-2023M1132389

PATIENT

DRUGS (2)
  1. ESTRADIOL TRANSDERMAL SYSTEM [Suspect]
     Active Substance: ESTRADIOL
     Indication: Product used for unknown indication
     Dosage: 0.1 MILLIGRAM, QD (10 CM2 SYSTEM, BIWEEKLY)
     Route: 062
  2. ESTRADIOL TRANSDERMAL SYSTEM [Suspect]
     Active Substance: ESTRADIOL
     Dosage: 0.1 MILLIGRAM, QD (10 CM2 SYSTEM, BIWEEKLY)
     Route: 062

REACTIONS (5)
  - Heart rate increased [Unknown]
  - Feeling hot [Unknown]
  - Dyspnoea [Unknown]
  - Disturbance in attention [Unknown]
  - Product adhesion issue [Unknown]
